FAERS Safety Report 16890998 (Version 1)
Quarter: 2019Q4

REPORT INFORMATION
  Report Type: Report from Study
  Country: US (occurrence: US)
  Receive Date: 20191007
  Receipt Date: 20191007
  Transmission Date: 20200122
  Serious: Yes (Other)
  Sender: FDA-Public Use
  Company Number: US-ROCHE-2430995

PATIENT

DRUGS (3)
  1. TRASTUZUMAB. [Suspect]
     Active Substance: TRASTUZUMAB
     Indication: PANCREATIC CARCINOMA METASTATIC
     Dosage: OVER 90 MINUTES ON WEEK 1
     Route: 042
  2. TRASTUZUMAB. [Suspect]
     Active Substance: TRASTUZUMAB
     Dosage: INFUSION OVER 30 TO 60 MINUTES
     Route: 042
  3. GEMCITABINE. [Suspect]
     Active Substance: GEMCITABINE
     Indication: PANCREATIC CARCINOMA METASTATIC
     Dosage: 1 G/M2 OVER 30 MINUTES FOLLOWED BY A 1-WEEK REST, THEN ONCE WEEKLY FOR 3 CONSECUTIVE WEEKS OUT OF EV
     Route: 042

REACTIONS (8)
  - Neutropenia [Unknown]
  - Fatigue [Unknown]
  - Thrombocytopenia [Unknown]
  - Nausea [Unknown]
  - Liver function test abnormal [Unknown]
  - Ejection fraction decreased [Unknown]
  - Anaemia [Unknown]
  - Decreased appetite [Unknown]
